FAERS Safety Report 22204962 (Version 1)
Quarter: 2023Q2

REPORT INFORMATION
  Report Type: Spontaneous
  Country: IR (occurrence: IR)
  Receive Date: 20230413
  Receipt Date: 20230413
  Transmission Date: 20230722
  Serious: Yes (Other)
  Sender: FDA-Public Use
  Company Number: IR-MACLEODS PHARMACEUTICALS US LTD-MAC2023040701

PATIENT

DRUGS (10)
  1. LIDOCAINE [Suspect]
     Active Substance: LIDOCAINE
     Indication: General anaesthesia
     Dosage: 100 MILLIGRAM
     Route: 065
  2. MORPHINE [Suspect]
     Active Substance: MORPHINE
     Indication: General anaesthesia
     Dosage: 10 MILLIGRAM
     Route: 065
  3. NITROUS OXIDE\OXYGEN [Suspect]
     Active Substance: NITROUS OXIDE\OXYGEN
     Indication: Maintenance of anaesthesia
     Dosage: UNK
     Route: 065
  4. EPINEPHRINE\LIDOCAINE HYDROCHLORIDE [Suspect]
     Active Substance: EPINEPHRINE\LIDOCAINE HYDROCHLORIDE
     Indication: Haemostasis
     Dosage: 5 MILLILITER, LIDOCAINE HYDROCHLORIDE STRENGH WAS 2 %, EPINEPHRINE 1:100000
     Route: 065
  5. REMIFENTANIL [Suspect]
     Active Substance: REMIFENTANIL
     Indication: Maintenance of anaesthesia
     Dosage: UNK, 0.2 UG/KG PER MINUTE
     Route: 065
  6. FENTANYL [Suspect]
     Active Substance: FENTANYL
     Indication: General anaesthesia
     Dosage: 150 MICROGRAM
     Route: 065
  7. PROPOFOL [Suspect]
     Active Substance: PROPOFOL
     Indication: General anaesthesia
     Dosage: 150 MILLIGRAM
     Route: 065
  8. PROPOFOL [Suspect]
     Active Substance: PROPOFOL
     Indication: Maintenance of anaesthesia
     Dosage: UNK, 150 UG/KG PER MINUTE
     Route: 065
  9. PHENYLEPHRINE [Concomitant]
     Active Substance: PHENYLEPHRINE HYDROCHLORIDE
     Indication: Nasal decongestion therapy
     Dosage: UNK
     Route: 045
  10. ATRACURIUM [Concomitant]
     Active Substance: ATRACURIUM
     Indication: Hypotonia
     Dosage: 40 MILLIGRAM
     Route: 065

REACTIONS (1)
  - Mydriasis [Recovered/Resolved]
